FAERS Safety Report 21154763 (Version 4)
Quarter: 2022Q3

REPORT INFORMATION
  Report Type: Spontaneous
  Country: US (occurrence: US)
  Receive Date: 20220801
  Receipt Date: 20220920
  Transmission Date: 20221026
  Serious: No
  Sender: FDA-Public Use
  Company Number: US-PFIZER INC-2020192526

PATIENT
  Age: 13 Year
  Sex: Male

DRUGS (5)
  1. GENOTROPIN [Suspect]
     Active Substance: SOMATROPIN
     Dosage: 1.4 MG, DAILY (7 DAYS A WEEK)
  2. GENOTROPIN [Suspect]
     Active Substance: SOMATROPIN
     Dosage: 0.4
     Dates: start: 201908
  3. GENOTROPIN [Suspect]
     Active Substance: SOMATROPIN
     Dosage: 1.2 MG
  4. GENOTROPIN [Suspect]
     Active Substance: SOMATROPIN
     Dosage: 2.0 MG, DAILY (EVERY NIGHT)
  5. ANASTROZOLE [Concomitant]
     Active Substance: ANASTROZOLE
     Indication: Bone disorder
     Dosage: 1 MG, DAILY (EVERY NIGHT)

REACTIONS (4)
  - Device use error [Unknown]
  - Expired device used [Unknown]
  - Drug dose omission by device [Unknown]
  - Device breakage [Unknown]

NARRATIVE: CASE EVENT DATE: 20220711
